FAERS Safety Report 6722112-X (Version None)
Quarter: 2010Q2

REPORT INFORMATION
  Report Type: 
  Country: None (occurrence: None)
  Receive Date: 20100512
  Receipt Date: 20100510
  Transmission Date: 20101027
  Serious: Yes (Hospitalization)
  Sender: FDA-Public Use
  Company Number: US-CEPHALON-2010002673

PATIENT
  Sex: Female
  Weight: 54 kg

DRUGS (4)
  1. TREANDA [Suspect]
     Indication: CHRONIC LYMPHOCYTIC LEUKAEMIA
     Dates: start: 20100306
  2. RITUXAN [Concomitant]
     Indication: CHRONIC LYMPHOCYTIC LEUKAEMIA
     Dates: start: 20100306
  3. KEPPRA [Concomitant]
     Indication: CONVULSION
     Dates: start: 20091001
  4. ACYCLOVIR [Concomitant]
     Indication: PROPHYLAXIS
     Dates: start: 20100101

REACTIONS (2)
  - BLOOD COUNT ABNORMAL [None]
  - NEUROPATHY PERIPHERAL [None]
